FAERS Safety Report 18706817 (Version 1)
Quarter: 2021Q1

REPORT INFORMATION
  Report Type: Spontaneous
  Country: US (occurrence: US)
  Receive Date: 20210105
  Receipt Date: 20210105
  Transmission Date: 20210419
  Serious: No
  Sender: FDA-Public Use
  Company Number: None

PATIENT
  Age: 63 Year
  Sex: Female

DRUGS (1)
  1. FUNGI NAIL ANTI?FUNGAL PEN [Suspect]
     Active Substance: TOLNAFTATE
     Indication: ONYCHOMYCOSIS
     Route: 061

REACTIONS (2)
  - Physical product label issue [None]
  - Product use complaint [None]

NARRATIVE: CASE EVENT DATE: 20210104
